FAERS Safety Report 6323950-8 (Version None)
Quarter: 2009Q3

REPORT INFORMATION
  Report Type: 
  Country: None (occurrence: None)
  Receive Date: 20090824
  Receipt Date: 20090814
  Transmission Date: 20100115
  Serious: Yes (Hospitalization)
  Sender: FDA-Public Use
  Company Number: A0802984A

PATIENT
  Age: 70 Year
  Sex: Female
  Weight: 45.4 kg

DRUGS (7)
  1. TOPOTECAN [Suspect]
     Indication: ENDOMETRIAL CANCER RECURRENT
     Dosage: 1.9MG CYCLIC
     Route: 048
     Dates: start: 20090722
  2. EVEROLIMUS [Suspect]
     Indication: ENDOMETRIAL CANCER RECURRENT
     Dosage: 5MG PER DAY
     Route: 048
     Dates: start: 20090722
  3. ACTONEL [Concomitant]
     Indication: OSTEOPENIA
     Dosage: 150MG MONTHLY
  4. MORPHINE SULFATE [Concomitant]
     Dosage: 15MG SIX TIMES PER DAY
  5. PEPCID [Concomitant]
     Dosage: 20MG AS REQUIRED
  6. VITAMIN B6 [Concomitant]
     Dosage: 200MG PER DAY
  7. LORAZEPAM [Concomitant]
     Indication: ANXIETY
     Dosage: 1MG AS REQUIRED

REACTIONS (3)
  - ABDOMINAL PAIN [None]
  - NAUSEA [None]
  - VOMITING [None]
